FAERS Safety Report 18265052 (Version 2)
Quarter: 2020Q4

REPORT INFORMATION
  Report Type: Report from Study
  Country: CA (occurrence: CA)
  Receive Date: 20200914
  Receipt Date: 20201013
  Transmission Date: 20210113
  Serious: Yes (Other)
  Sender: FDA-Public Use
  Company Number: CA-NALPROPION PHARMACEUTICALS INC.-2020-010267

PATIENT

DRUGS (9)
  1. CONTRAVE [Suspect]
     Active Substance: BUPROPION HYDROCHLORIDE\NALTREXONE HYDROCHLORIDE
     Indication: WEIGHT CONTROL
     Dosage: STRENGTH 90/8 MG (1 TABLET IN MORNING)
     Route: 048
     Dates: start: 20200224, end: 20200301
  2. CONTRAVE [Suspect]
     Active Substance: BUPROPION HYDROCHLORIDE\NALTREXONE HYDROCHLORIDE
     Dosage: STRENGTH 90/8 MG (2 TABLET IN MORNING AND 1 IN EVENING)
     Route: 048
     Dates: start: 20200309, end: 20200315
  3. CONTRAVE [Suspect]
     Active Substance: BUPROPION HYDROCHLORIDE\NALTREXONE HYDROCHLORIDE
     Dosage: STRENGTH 90/8 MG (2 TABLET IN MORNING AND 2 IN EVENING)
     Route: 048
     Dates: start: 20200716
  4. SYNTHROID [Concomitant]
     Active Substance: LEVOTHYROXINE SODIUM
     Indication: HYPOTHYROIDISM
     Dosage: 1 IN 1 D
     Route: 048
  5. CONTRAVE [Suspect]
     Active Substance: BUPROPION HYDROCHLORIDE\NALTREXONE HYDROCHLORIDE
     Dosage: STRENGTH 90/8 MG (2 TABLET IN MORNING AND 2 IN EVENING)
     Route: 048
     Dates: start: 20200316, end: 202006
  6. CONTRAVE [Suspect]
     Active Substance: BUPROPION HYDROCHLORIDE\NALTREXONE HYDROCHLORIDE
     Dosage: STRENGTH 90/8 MG (2 TABLETS IN MORNING AND 1 IN EVENING)
     Route: 048
     Dates: start: 20200709, end: 20200715
  7. CONTRAVE [Suspect]
     Active Substance: BUPROPION HYDROCHLORIDE\NALTREXONE HYDROCHLORIDE
     Dosage: STRENGTH 90/8 MG (1 TABLET IN MORNING AND 1 IN EVENING)
     Route: 048
     Dates: start: 20200302, end: 20200308
  8. CRESTOR [Concomitant]
     Active Substance: ROSUVASTATIN CALCIUM
     Indication: BLOOD CHOLESTEROL ABNORMAL
     Dosage: 1 IN 1 D
     Route: 048
  9. CONTRAVE [Suspect]
     Active Substance: BUPROPION HYDROCHLORIDE\NALTREXONE HYDROCHLORIDE
     Dosage: STRENGTH 90/8 MG (1 TABLET IN MORNING AND 1 IN EVENING), STARTED APPROXIMATELY ON 08/JUN/2020
     Route: 048
     Dates: start: 202006, end: 20200708

REACTIONS (12)
  - Loss of personal independence in daily activities [Recovering/Resolving]
  - Constipation [Not Recovered/Not Resolved]
  - Product dose omission in error [Unknown]
  - Libido decreased [Not Recovered/Not Resolved]
  - Gait disturbance [Recovering/Resolving]
  - Plantar fasciitis [Recovering/Resolving]
  - Hunger [Unknown]
  - Inappropriate schedule of product administration [Unknown]
  - Dry mouth [Not Recovered/Not Resolved]
  - Dizziness [Unknown]
  - Thirst [Not Recovered/Not Resolved]
  - Headache [Not Recovered/Not Resolved]

NARRATIVE: CASE EVENT DATE: 2020
